FAERS Safety Report 4827444-8 (Version None)
Quarter: 2005Q4

REPORT INFORMATION
  Report Type: 
  Country: None (occurrence: None)
  Receive Date: 20051114
  Receipt Date: 20051109
  Transmission Date: 20060501
  Serious: Yes (Life-Threatening, Hospitalization)
  Sender: FDA-Public Use
  Company Number: 2005AP05801

PATIENT
  Age: 64 Year
  Sex: Female

DRUGS (4)
  1. LOSEC [Suspect]
     Route: 048
  2. VIOXX [Suspect]
     Route: 048
     Dates: end: 20040715
  3. GOPTEN [Suspect]
     Route: 048
  4. ASPIRIN [Suspect]
     Route: 048

REACTIONS (2)
  - HYPERTENSION [None]
  - MYOCARDIAL INFARCTION [None]
